FAERS Safety Report 13739036 (Version 2)
Quarter: 2017Q3

REPORT INFORMATION
  Report Type: Spontaneous
  Country: US (occurrence: US)
  Receive Date: 20170710
  Receipt Date: 20170809
  Transmission Date: 20171127
  Serious: Yes (Other)
  Sender: FDA-Public Use
  Company Number: US-SAOL THERAPEUTICS-2017SAO00821

PATIENT
  Age: 69 Year
  Sex: Male

DRUGS (2)
  1. LIORESAL [Suspect]
     Active Substance: BACLOFEN
     Indication: MUSCLE SPASTICITY
     Dosage: 265.3 ?G, \DAY
     Route: 037
  2. LIORESAL [Suspect]
     Active Substance: BACLOFEN
     Dosage: 289.7 ?G, \DAY
     Route: 037

REACTIONS (9)
  - Mobility decreased [Unknown]
  - Somnolence [Unknown]
  - Hyperhidrosis [Unknown]
  - Aggression [Unknown]
  - Dyspnoea [Unknown]
  - Vomiting [Unknown]
  - Loss of personal independence in daily activities [Unknown]
  - Muscle spasticity [Unknown]
  - Muscle rigidity [Not Recovered/Not Resolved]

NARRATIVE: CASE EVENT DATE: 20170428
